FAERS Safety Report 9627574 (Version 1)
Quarter: 2013Q4

REPORT INFORMATION
  Report Type: Not Available
  Country: US (occurrence: US)
  Receive Date: 20131016
  Receipt Date: 20131016
  Transmission Date: 20140711
  Serious: No
  Sender: FDA-Public Use
  Company Number: US-LUNDBECK-DKLU1089983

PATIENT
  Age: 5 Year
  Sex: Male

DRUGS (4)
  1. SABRIL (FOR ORAL SOLUTION) [Suspect]
     Indication: EPILEPSY
     Route: 048
     Dates: start: 20100826
  2. SABRIL (FOR ORAL SOLUTION) [Suspect]
     Indication: EPILEPSY
  3. KEPPRA [Concomitant]
     Indication: CONVULSION
  4. TOPIRAMATE [Concomitant]
     Indication: CONVULSION

REACTIONS (1)
  - Pyrexia [Unknown]
